FAERS Safety Report 23934214 (Version 3)
Quarter: 2024Q4

REPORT INFORMATION
  Report Type: Report from Study
  Country: IT (occurrence: IT)
  Receive Date: 20240603
  Receipt Date: 20241111
  Transmission Date: 20250115
  Serious: No
  Sender: SANDOZ
  Company Number: IT-SANDOZ-SDZ2024IT054262

PATIENT
  Age: 14 Year
  Sex: Female
  Weight: 68 kg

DRUGS (1)
  1. SOMATROPIN [Suspect]
     Active Substance: SOMATROPIN
     Indication: Growth hormone deficiency
     Dosage: 1.6 MG, QD
     Route: 058
     Dates: start: 20240131, end: 20240405

REACTIONS (2)
  - Drug dose omission by device [Unknown]
  - Device mechanical issue [Unknown]

NARRATIVE: CASE EVENT DATE: 20240403
